FAERS Safety Report 5204838-2 (Version None)
Quarter: 2007Q1

REPORT INFORMATION
  Report Type: 
  Country: None (occurrence: None)
  Receive Date: 20070110
  Receipt Date: 20060906
  Transmission Date: 20070707
  Serious: No
  Sender: FDA-Public Use
  Company Number: US-BRISTOL-MYERS SQUIBB COMPANY-13464342

PATIENT
  Age: 42 Year
  Sex: Male
  Weight: 102 kg

DRUGS (2)
  1. ABILIFY [Suspect]
     Indication: BIPOLAR DISORDER
     Route: 048
     Dates: start: 20060728, end: 20060728
  2. MELLARIL [Concomitant]
     Dates: end: 20060727

REACTIONS (2)
  - MIGRAINE [None]
  - SOMNOLENCE [None]
